FAERS Safety Report 24668994 (Version 1)
Quarter: 2024Q4

REPORT INFORMATION
  Report Type: Spontaneous
  Country: US (occurrence: US)
  Receive Date: 20241127
  Receipt Date: 20241127
  Transmission Date: 20250115
  Serious: No
  Sender: NOVARTIS
  Company Number: US-002147023-NVSC2024US227028

PATIENT
  Sex: Female

DRUGS (1)
  1. LEQVIO [Suspect]
     Active Substance: INCLISIRAN SODIUM
     Indication: Low density lipoprotein increased
     Dosage: 284 MG, OTHER (DAY ZERO, AT 3 MONTHS THEN EVERY 6 MONTHS)
     Route: 058
     Dates: start: 20240701

REACTIONS (3)
  - Fatigue [Recovering/Resolving]
  - Arthritis [Recovering/Resolving]
  - Fibromyalgia [Recovering/Resolving]
